FAERS Safety Report 4758650-9 (Version None)
Quarter: 2005Q3

REPORT INFORMATION
  Report Type: 
  Country: None (occurrence: None)
  Receive Date: 20050901
  Receipt Date: 20050803
  Transmission Date: 20060218
  Serious: Yes (Hospitalization)
  Sender: FDA-Public Use
  Company Number: 2005AP04329

PATIENT
  Age: 26432 Day
  Sex: Male

DRUGS (10)
  1. TENORMIN [Suspect]
     Indication: HYPERTENSION
     Route: 048
     Dates: start: 20050613, end: 20050624
  2. TENORMIN [Suspect]
     Indication: HYPERLIPIDAEMIA
     Route: 048
     Dates: start: 20050613, end: 20050624
  3. ADALAT [Concomitant]
     Route: 048
     Dates: start: 19970701
  4. ADALAT [Concomitant]
     Route: 048
     Dates: start: 20050711
  5. RIBALL [Concomitant]
     Route: 048
     Dates: start: 19970701
  6. RIBALL [Concomitant]
     Route: 048
     Dates: start: 20050803
  7. EPADEL [Concomitant]
     Route: 048
     Dates: start: 20040430, end: 20050625
  8. BLOPRESS [Concomitant]
     Route: 048
     Dates: start: 20040430, end: 20050625
  9. BEZALIP [Concomitant]
     Route: 048
     Dates: start: 20020430, end: 20050625
  10. NATRIX [Concomitant]
     Route: 048
     Dates: start: 20050520, end: 20050612

REACTIONS (5)
  - CHOLELITHIASIS [None]
  - CHOLESTASIS [None]
  - DRUG INEFFECTIVE [None]
  - HEPATIC STEATOSIS [None]
  - JAUNDICE [None]
